FAERS Safety Report 9950955 (Version 1)
Quarter: 2014Q1

REPORT INFORMATION
  Report Type: Spontaneous
  Country: US (occurrence: US)
  Receive Date: 20140304
  Receipt Date: 20140304
  Transmission Date: 20141002
  Serious: No
  Sender: FDA-Public Use
  Company Number: US-AMGEN-USASP2014004078

PATIENT
  Age: 62 Year
  Sex: Male
  Weight: 87.98 kg

DRUGS (6)
  1. ENBREL [Suspect]
     Indication: PRODUCT USED FOR UNKNOWN INDICATION
     Dosage: 25 MG, 2 TIMES/WK
     Route: 058
  2. CELEBREX [Concomitant]
     Dosage: 400 MG, UNK
  3. LIPITOR [Concomitant]
     Dosage: 10 MG, UNK
  4. ATENOLOL [Concomitant]
     Dosage: 50 MG, UNK
  5. METFORMIN [Concomitant]
     Dosage: 1000 MG, UNK
  6. TYLENOL                            /00020001/ [Concomitant]
     Dosage: 650 MG, 8 HOUR

REACTIONS (1)
  - Rheumatoid arthritis [Unknown]
